FAERS Safety Report 16211786 (Version 1)
Quarter: 2019Q2

REPORT INFORMATION
  Report Type: Spontaneous
  Country: US (occurrence: US)
  Receive Date: 20190417
  Receipt Date: 20190417
  Transmission Date: 20190711
  Serious: Yes (Hospitalization)
  Sender: FDA-Public Use
  Company Number: None

PATIENT
  Age: 70 Year
  Sex: Male

DRUGS (5)
  1. FEROSUL [Concomitant]
  2. COLESTIPOL [Concomitant]
     Active Substance: COLESTIPOL
  3. ASPIRIN. [Concomitant]
     Active Substance: ASPIRIN
  4. EZETIMBE [Concomitant]
     Active Substance: EZETIMIBE
  5. REPATHA [Suspect]
     Active Substance: EVOLOCUMAB
     Indication: HYPERCHOLESTEROLAEMIA
     Dosage: ?          OTHER FREQUENCY:EVERY 2 WEEKS;?
     Route: 058
     Dates: start: 20180725

REACTIONS (1)
  - Knee operation [None]

NARRATIVE: CASE EVENT DATE: 20190321
